FAERS Safety Report 9556719 (Version 2)
Quarter: 2013Q4

REPORT INFORMATION
  Report Type: Spontaneous
  Country: US (occurrence: US)
  Receive Date: 20130926
  Receipt Date: 20131028
  Transmission Date: 20140711
  Serious: No
  Sender: FDA-Public Use
  Company Number: US-PFIZER INC-2013274355

PATIENT
  Age: 69 Year
  Sex: Male
  Weight: 80.27 kg

DRUGS (3)
  1. PROTONIX [Suspect]
     Indication: GASTRIC DISORDER
     Dosage: 40 MG, 1X/DAY
     Route: 048
     Dates: end: 201301
  2. PLAVIX [Concomitant]
     Indication: POSTOPERATIVE CARE
     Dosage: UNK
  3. DAYPRO [Concomitant]
     Dosage: 600 MG, UNK
     Route: 048

REACTIONS (1)
  - Haemoptysis [Unknown]
